FAERS Safety Report 6719793-3 (Version None)
Quarter: 2010Q2

REPORT INFORMATION
  Report Type: 
  Country: None (occurrence: None)
  Receive Date: 20100511
  Receipt Date: 20100504
  Transmission Date: 20101027
  Serious: Yes (Hospitalization)
  Sender: FDA-Public Use
  Company Number: B0652119A

PATIENT
  Sex: Female

DRUGS (10)
  1. TYVERB [Suspect]
     Indication: BREAST CANCER
     Dosage: 1250MG PER DAY
     Route: 065
     Dates: start: 20100120
  2. CAPECITABINE [Concomitant]
     Dosage: 2000MG PER DAY
     Route: 065
     Dates: start: 20100120
  3. DIUREX [Concomitant]
     Route: 065
     Dates: start: 20100120
  4. PRESTARIUM [Concomitant]
     Route: 065
     Dates: start: 20100120
  5. OMEPRAZOLE [Concomitant]
     Route: 065
     Dates: start: 20100120
  6. MAGNESIUM [Concomitant]
     Route: 065
     Dates: start: 20100120
  7. HERCEPTIN [Concomitant]
     Route: 065
     Dates: end: 20091201
  8. CHEMOTHERAPY [Concomitant]
     Route: 065
     Dates: end: 20080101
  9. RADIOTHERAPY [Concomitant]
     Route: 065
     Dates: end: 20080101
  10. HORMONAL THERAPY [Concomitant]
     Route: 065
     Dates: end: 20080101

REACTIONS (3)
  - ASTHENIA [None]
  - MYALGIA [None]
  - RASH [None]
